FAERS Safety Report 14665778 (Version 1)
Quarter: 2018Q1

REPORT INFORMATION
  Report Type: Spontaneous
  Country: GB (occurrence: GB)
  Receive Date: 20180321
  Receipt Date: 20180321
  Transmission Date: 20180509
  Serious: Yes (Disabling, Other)
  Sender: FDA-Public Use
  Company Number: GB-TEVA-2018-GB-872047

PATIENT
  Age: 78 Year
  Sex: Male
  Weight: 95.09 kg

DRUGS (12)
  1. IBUGEL [Concomitant]
     Active Substance: IBUPROFEN
     Dosage: 3 DOSAGE FORMS DAILY; APPLY TO AFFECTED AREAS
     Route: 065
  2. ACETYLSALICYLIC ACID [Concomitant]
     Active Substance: ASPIRIN
     Dosage: 75 MILLIGRAM DAILY;
     Route: 065
  3. METFORMIN [Concomitant]
     Active Substance: METFORMIN HYDROCHLORIDE
     Dosage: 500 MILLIGRAM DAILY;
     Route: 065
  4. TAMSULOSIN [Concomitant]
     Active Substance: TAMSULOSIN
     Dosage: 400 MICROGRAM DAILY;
     Route: 065
  5. RAMIPRIL. [Concomitant]
     Active Substance: RAMIPRIL
     Dosage: 10 MILLIGRAM DAILY;
     Route: 065
  6. BISOPROLOL [Concomitant]
     Active Substance: BISOPROLOL
     Dosage: 2.5 MILLIGRAM DAILY;
     Route: 065
  7. HYPROMELLOSE [Concomitant]
     Active Substance: HYPROMELLOSES
     Dosage: 3 DOSAGE FORMS DAILY;
     Route: 050
  8. ATORVASTATIN [Concomitant]
     Active Substance: ATORVASTATIN
     Dosage: 20 MILLIGRAM DAILY;
     Route: 065
  9. CLOPIDOGREL [Concomitant]
     Active Substance: CLOPIDOGREL BISULFATE
     Dosage: 75 MILLIGRAM DAILY;
     Route: 065
  10. FINASTERIDE. [Suspect]
     Active Substance: FINASTERIDE
     Indication: LOWER URINARY TRACT SYMPTOMS
     Route: 048
  11. COCODAMOL [Concomitant]
     Active Substance: ACETAMINOPHEN\CODEINE PHOSPHATE
     Dosage: 15MG.500MG - 1-2
     Route: 065
  12. NITROLINGUAL [Concomitant]
     Active Substance: NITROGLYCERIN
     Dosage: 1-2 ?400MCG/DOSE
     Route: 060

REACTIONS (1)
  - Perineal pain [Recovered/Resolved]
